FAERS Safety Report 5846942-1 (Version None)
Quarter: 2008Q3

REPORT INFORMATION
  Report Type: 
  Country: None (occurrence: None)
  Receive Date: 20080815
  Receipt Date: 20080805
  Transmission Date: 20090109
  Serious: Yes (Other)
  Sender: FDA-Public Use
  Company Number: US-ELI_LILLY_AND_COMPANY-US200808001526

PATIENT
  Age: 48 Year
  Sex: Female

DRUGS (4)
  1. CYMBALTA [Suspect]
     Indication: FIBROMYALGIA
     Dosage: 30 MG, UNK
  2. CYMBALTA [Suspect]
     Dosage: UNK MG, UNK
  3. LYRICA [Concomitant]
  4. NEURONTIN [Concomitant]

REACTIONS (5)
  - ADVERSE EVENT [None]
  - CHEST PAIN [None]
  - HYPERTENSION [None]
  - NAUSEA [None]
  - PARAESTHESIA [None]
